FAERS Safety Report 15453493 (Version 1)
Quarter: 2018Q4

REPORT INFORMATION
  Report Type: Spontaneous
  Country: US (occurrence: US)
  Receive Date: 20181001
  Receipt Date: 20181001
  Transmission Date: 20190204
  Serious: Yes (Other)
  Sender: FDA-Public Use
  Company Number: US-SAKK-2018SA256086AA

PATIENT
  Age: 28 Year
  Sex: Female

DRUGS (1)
  1. ALDURAZYME [Suspect]
     Active Substance: LARONIDASE
     Indication: MUCOPOLYSACCHARIDOSIS I
     Dosage: 34.8 MG, QW
     Route: 041
     Dates: start: 20120706, end: 20180831

REACTIONS (2)
  - Device related infection [Unknown]
  - Staphylococcal sepsis [Not Recovered/Not Resolved]
